FAERS Safety Report 5164454-8 (Version None)
Quarter: 2006Q4

REPORT INFORMATION
  Report Type: 
  Country: None (occurrence: None)
  Receive Date: 20061205
  Receipt Date: 20010510
  Transmission Date: 20070319
  Serious: Yes (Hospitalization)
  Sender: FDA-Public Use
  Company Number: 10833796

PATIENT
  Age: 4 Year
  Sex: Male

DRUGS (4)
  1. ZERIT [Suspect]
     Indication: HIV TEST POSITIVE
  2. VIDEX [Suspect]
     Indication: HIV TEST POSITIVE
  3. VIRAMUNE [Suspect]
     Indication: HIV TEST POSITIVE
  4. RETROVIR [Suspect]
     Indication: HIV TEST POSITIVE

REACTIONS (2)
  - PSYCHOMOTOR SKILLS IMPAIRED [None]
  - SPEECH DISORDER [None]
